FAERS Safety Report 5038695-4 (Version None)
Quarter: 2006Q2

REPORT INFORMATION
  Report Type: 
  Country: None (occurrence: None)
  Receive Date: 20060629
  Receipt Date: 20060320
  Transmission Date: 20061013
  Serious: No
  Sender: FDA-Public Use
  Company Number: US-BRISTOL-MYERS SQUIBB COMPANY-13322128

PATIENT
  Age: 40 Year
  Sex: Male
  Weight: 60 kg

DRUGS (5)
  1. REYATAZ [Suspect]
     Indication: HIV INFECTION
     Route: 048
     Dates: start: 20050209
  2. NORVIR [Concomitant]
     Dates: start: 20050209
  3. VIRAMUNE [Concomitant]
  4. VIREAD [Concomitant]
     Dates: start: 20050209
  5. BACTRIM [Concomitant]

REACTIONS (1)
  - DRUG LEVEL DECREASED [None]
